FAERS Safety Report 4335650-4 (Version None)
Quarter: 2004Q2

REPORT INFORMATION
  Report Type: 
  Country: None (occurrence: None)
  Receive Date: 20040406
  Receipt Date: 20000419
  Transmission Date: 20050107
  Serious: Yes (Other)
  Sender: FDA-Public Use
  Company Number: HQ3938220APR2000

PATIENT
  Age: 0 Month
  Sex: Male

DRUGS (1)
  1. EFFEXOR [Suspect]
     Dosage: 187.5 MG DAILY TAPERED DOWN TO 75 MG DAILY THEN INCREASED TO 150 MG DAILY, TRANSPLACENTAL
     Route: 064
     Dates: end: 20000414

REACTIONS (2)
  - DRUG WITHDRAWAL SYNDROME NEONATAL [None]
  - MATERNAL DRUGS AFFECTING FOETUS [None]
